FAERS Safety Report 9592068 (Version 2)
Quarter: 2013Q4

REPORT INFORMATION
  Report Type: Spontaneous
  Country: US (occurrence: US)
  Receive Date: 20131004
  Receipt Date: 20131004
  Transmission Date: 20140711
  Serious: Yes (Other)
  Sender: FDA-Public Use
  Company Number: US-JNJFOC-20130610194

PATIENT
  Age: 59 Year
  Sex: Female
  Weight: 104.33 kg

DRUGS (7)
  1. EXTRA STRENGTH TYLENOL [Suspect]
     Indication: PAIN
     Route: 048
     Dates: start: 20130606
  2. EXTRA STRENGTH TYLENOL [Suspect]
     Indication: PAIN
     Route: 048
     Dates: start: 20130606
  3. EXTRA STRENGTH TYLENOL [Suspect]
     Indication: HEADACHE
     Route: 048
     Dates: start: 20130606
  4. EXTRA STRENGTH TYLENOL [Suspect]
     Indication: BACK PAIN
     Route: 048
     Dates: start: 20130606
  5. EXTRA STRENGTH TYLENOL [Suspect]
     Indication: ARTHRITIS
     Route: 048
     Dates: start: 20130606
  6. LEVOTHYROXINE [Concomitant]
     Indication: BASEDOW^S DISEASE
     Route: 065
  7. FUROSEMIDE [Concomitant]
     Indication: PRODUCT USED FOR UNKNOWN INDICATION
     Route: 065

REACTIONS (10)
  - Liver injury [Not Recovered/Not Resolved]
  - Sensory disturbance [Not Recovered/Not Resolved]
  - Abdominal discomfort [Not Recovered/Not Resolved]
  - Abdominal discomfort [Not Recovered/Not Resolved]
  - Swollen tongue [Not Recovered/Not Resolved]
  - Gastrointestinal pain [Not Recovered/Not Resolved]
  - Condition aggravated [Unknown]
  - Wheezing [Not Recovered/Not Resolved]
  - Swelling face [Not Recovered/Not Resolved]
  - Urticaria [Not Recovered/Not Resolved]
